FAERS Safety Report 18239210 (Version 1)
Quarter: 2020Q3

REPORT INFORMATION
  Report Type: Report from Study
  Country: AU (occurrence: AU)
  Receive Date: 20200907
  Receipt Date: 20200907
  Transmission Date: 20201103
  Serious: Yes (Other)
  Sender: FDA-Public Use
  Company Number: NVSC2020AU241488

PATIENT
  Age: 73 Year
  Sex: Female

DRUGS (2)
  1. BEOVU [Suspect]
     Active Substance: BROLUCIZUMAB-DBLL
     Indication: PRODUCT USED FOR UNKNOWN INDICATION
     Dosage: UNK LEFT EYE, EVERY 5 WEEKS
     Route: 065
     Dates: start: 20200730
  2. BEOVU [Suspect]
     Active Substance: BROLUCIZUMAB-DBLL
     Dosage: UNK LEFT EYE, EVERY 5 WEEKS
     Route: 065
     Dates: start: 20200825

REACTIONS (5)
  - Vitreous floaters [Unknown]
  - Vitreous haze [Unknown]
  - Vitritis [Unknown]
  - Chorioretinitis [Unknown]
  - Visual impairment [Unknown]

NARRATIVE: CASE EVENT DATE: 202008
